FAERS Safety Report 5060946-0 (Version None)
Quarter: 2006Q3

REPORT INFORMATION
  Report Type: 
  Country: None (occurrence: None)
  Receive Date: 20060720
  Receipt Date: 20060720
  Transmission Date: 20061208
  Serious: Yes (Other)
  Sender: FDA-Public Use
  Company Number: None

PATIENT
  Sex: Male

DRUGS (11)
  1. TIGECYCLINE     50 MG [Suspect]
     Indication: DIABETIC FOOT
     Dosage: 50 MG  Q 12 HR   IV
     Route: 042
     Dates: start: 20060505, end: 20060511
  2. FLUNISOLIDE [Concomitant]
  3. FUROSEMIDE [Concomitant]
  4. HEPARIN [Concomitant]
  5. INSULIN [Concomitant]
  6. LISINOPRIL [Concomitant]
  7. METOPROLOL [Concomitant]
  8. NICOTINE [Concomitant]
  9. OMEPRAZOLE [Concomitant]
  10. OXYCODONE AND ACETAMINOPHEN [Concomitant]
  11. SIMVASTATIN [Concomitant]

REACTIONS (1)
  - NAUSEA [None]
